FAERS Safety Report 8975961 (Version 1)
Quarter: 2012Q4

REPORT INFORMATION
  Report Type: 
  Country: US (occurrence: US)
  Receive Date: 20121219
  Receipt Date: 20121219
  Transmission Date: 20130627
  Serious: No
  Sender: FDA-Public Use
  Company Number: US-AMGEN-USASP2012068501

PATIENT
  Age: 64 Year
  Sex: Female

DRUGS (5)
  1. PROLIA [Suspect]
     Indication: OSTEOPOROSIS
     Dosage: UNK
  2. CRESTOR [Concomitant]
     Dosage: UNK
  3. METFORMIN [Concomitant]
     Dosage: UNK
  4. BABY ASPIRIN [Concomitant]
     Dosage: UNK
  5. LOSARTAN [Concomitant]
     Dosage: UNK

REACTIONS (4)
  - Tooth fracture [Unknown]
  - Back pain [Unknown]
  - Bone pain [Unknown]
  - Fibromyalgia [Unknown]
